FAERS Safety Report 12742564 (Version 2)
Quarter: 2016Q4

REPORT INFORMATION
  Report Type: Report from Study
  Country: SI (occurrence: SI)
  Receive Date: 20160914
  Receipt Date: 20161018
  Transmission Date: 20170207
  Serious: Yes (Hospitalization, Other)
  Sender: FDA-Public Use
  Company Number: SI-ASTELLAS-2016US034968

PATIENT
  Sex: Female
  Weight: 23 kg

DRUGS (4)
  1. NOXAFIL [Concomitant]
     Active Substance: POSACONAZOLE
     Indication: ANTIFUNGAL TREATMENT
     Dosage: 80 UNKNOWN UNIT, THRICE DAILY
     Route: 048
     Dates: start: 20140409, end: 20140509
  2. TRAMAL [Concomitant]
     Active Substance: TRAMADOL
     Indication: MUCOSITIS MANAGEMENT
     Dosage: UNK UNK, UNKNOWN FREQ.
     Route: 042
     Dates: end: 20140515
  3. TARGOCID [Concomitant]
     Active Substance: TEICOPLANIN
     Indication: FEBRILE NEUTROPENIA
     Dosage: UNK UNK, UNKNOWN FREQ.
     Route: 042
     Dates: start: 20140506, end: 20140520
  4. MICAFUNGIN [Suspect]
     Active Substance: MICAFUNGIN
     Indication: ASPERGILLUS INFECTION
     Route: 050
     Dates: start: 20140510, end: 20140514

REACTIONS (2)
  - Pneumonia [Recovered/Resolved]
  - Respiratory failure [Recovered/Resolved]

NARRATIVE: CASE EVENT DATE: 20140511
